FAERS Safety Report 5729806-3 (Version None)
Quarter: 2008Q2

REPORT INFORMATION
  Report Type: 
  Country: None (occurrence: None)
  Receive Date: 20080501
  Receipt Date: 20080403
  Transmission Date: 20081010
  Serious: Yes (Death)
  Sender: FDA-Public Use
  Company Number: 2008S1005663

PATIENT
  Age: 34 Year
  Sex: Male

DRUGS (8)
  1. TRAMADOL (TRAMODOL) [Suspect]
  2. ALPRAZOLAM [Concomitant]
  3. CODEINE SUL TAB [Concomitant]
  4. DIAZEPAM [Concomitant]
  5. ETHYLMORPHINE (ETHYLMORPHINE( [Concomitant]
  6. FLUNITRAZEPAM (FLUNITREZEPAM) [Concomitant]
  7. LEVOMEPROMAZINE (LEVOMEPROMAZINE) [Concomitant]
  8. MORPHINE [Concomitant]

REACTIONS (1)
  - OVERDOSE [None]
